FAERS Safety Report 24062775 (Version 1)
Quarter: 2024Q3

REPORT INFORMATION
  Report Type: Report from Study
  Country: US (occurrence: US)
  Receive Date: 20240709
  Receipt Date: 20240709
  Transmission Date: 20241017
  Serious: Yes (Hospitalization, Other)
  Sender: ABBVIE
  Company Number: US-ABBVIE-5828466

PATIENT
  Age: 42 Year
  Sex: Female

DRUGS (1)
  1. SKYRIZI [Suspect]
     Active Substance: RISANKIZUMAB-RZAA
     Indication: Product used for unknown indication
     Route: 058
     Dates: start: 20230929

REACTIONS (8)
  - Intestinal obstruction [Recovering/Resolving]
  - Blood creatinine abnormal [Unknown]
  - Abdominal distension [Unknown]
  - Vomiting [Unknown]
  - Thirst [Unknown]
  - Dehydration [Unknown]
  - Blood urea abnormal [Unknown]
  - Asthenia [Unknown]

NARRATIVE: CASE EVENT DATE: 20240530
